FAERS Safety Report 12583038 (Version 1)
Quarter: 2016Q3

REPORT INFORMATION
  Report Type: Report from Study
  Country: GB (occurrence: GB)
  Receive Date: 20160722
  Receipt Date: 20160722
  Transmission Date: 20161109
  Serious: Yes (Death, Hospitalization)
  Sender: FDA-Public Use
  Company Number: GB-CELGENEUS-GBR-2015104743

PATIENT
  Age: 73 Year
  Sex: Male
  Weight: 79.4 kg

DRUGS (12)
  1. METOCLOPRAMIDE. [Concomitant]
     Active Substance: METOCLOPRAMIDE
     Indication: NAUSEA
     Route: 065
     Dates: start: 20151012
  2. FLUCONAZOLE. [Concomitant]
     Active Substance: FLUCONAZOLE
     Indication: PROPHYLAXIS
     Route: 065
     Dates: start: 20151012
  3. ONDANSETRON [Concomitant]
     Active Substance: ONDANSETRON
     Indication: NAUSEA
     Route: 065
     Dates: start: 20151012
  4. AZACITIDINE INJECTABLE [Suspect]
     Active Substance: AZACITIDINE
     Dosage: 300 MILLIGRAM
     Route: 058
     Dates: start: 20151112, end: 20151117
  5. ACICLOVIR [Concomitant]
     Active Substance: ACYCLOVIR
     Indication: PROPHYLAXIS
     Route: 065
     Dates: start: 20151012
  6. ALLOPURINOL. [Concomitant]
     Active Substance: ALLOPURINOL
     Indication: PROPHYLAXIS
     Route: 065
     Dates: start: 20151012
  7. AZACITIDINE INJECTABLE [Suspect]
     Active Substance: AZACITIDINE
     Indication: CHRONIC MYELOMONOCYTIC LEUKAEMIA
     Route: 058
     Dates: start: 20151012
  8. AZACITIDINE INJECTABLE [Suspect]
     Active Substance: AZACITIDINE
     Dosage: 16 MILLIGRAM
     Route: 058
     Dates: start: 20151112, end: 20151112
  9. ZOPICLONE [Concomitant]
     Active Substance: ZOPICLONE
     Indication: INSOMNIA
     Route: 065
     Dates: start: 201102
  10. AZACITIDINE INJECTABLE [Suspect]
     Active Substance: AZACITIDINE
     Dosage: 600 MILLIGRAM
     Route: 058
     Dates: end: 20151112
  11. ELTROMBOPAG [Suspect]
     Active Substance: ELTROMBOPAG
     Indication: MYELODYSPLASTIC SYNDROME
     Route: 048
     Dates: start: 20151005
  12. OMEPRAZOLE. [Concomitant]
     Active Substance: OMEPRAZOLE
     Indication: DYSPEPSIA
     Dosage: 25 MILLIGRAM
     Route: 065
     Dates: start: 201102

REACTIONS (3)
  - Pyrexia [Recovered/Resolved]
  - Haemorrhage intracranial [Fatal]
  - Pyrexia [Recovered/Resolved]

NARRATIVE: CASE EVENT DATE: 20151013
